FAERS Safety Report 18422493 (Version 1)
Quarter: 2020Q4

REPORT INFORMATION
  Report Type: Spontaneous
  Country: US (occurrence: US)
  Receive Date: 20201023
  Receipt Date: 20201023
  Transmission Date: 20210114
  Serious: No
  Sender: FDA-Public Use
  Company Number: US-TEVA-2020-US-1841967

PATIENT
  Sex: Female

DRUGS (1)
  1. ETHAMBUTOL HCL TEVA [Suspect]
     Active Substance: ETHAMBUTOL HYDROCHLORIDE
     Route: 065
     Dates: start: 202008

REACTIONS (4)
  - Product substitution issue [Unknown]
  - Breast tenderness [Unknown]
  - Breast swelling [Unknown]
  - Nausea [Unknown]
